FAERS Safety Report 17215217 (Version 1)
Quarter: 2019Q4

REPORT INFORMATION
  Report Type: Spontaneous
  Country: US (occurrence: US)
  Receive Date: 20191230
  Receipt Date: 20191230
  Transmission Date: 20200122
  Serious: Yes (Other)
  Sender: FDA-Public Use
  Company Number: US-BECTON DICKINSON-2019BDN00447

PATIENT

DRUGS (2)
  1. CHLORAPREP [Suspect]
     Active Substance: CHLORHEXIDINE GLUCONATE\ISOPROPYL ALCOHOL
     Indication: INFECTION PROPHYLAXIS
     Route: 061
  2. DOT PG PRO 18G 10CM (DEVICE) [Suspect]
     Active Substance: DEVICE

REACTIONS (3)
  - Complication of device removal [Not Recovered/Not Resolved]
  - Catheter site pain [Unknown]
  - Foreign body [Not Recovered/Not Resolved]
